FAERS Safety Report 5092746-X (Version None)
Quarter: 2006Q3

REPORT INFORMATION
  Report Type: 
  Country: None (occurrence: None)
  Receive Date: 20060727
  Receipt Date: 20060605
  Transmission Date: 20061208
  Serious: Yes (Other)
  Sender: FDA-Public Use
  Company Number: 2006073113

PATIENT
  Age: 66 Year
  Sex: Male
  Weight: 86.1834 kg

DRUGS (6)
  1. LYRICA [Suspect]
     Indication: NEUROPATHY
     Dosage: 150 MG (75 MG, 2 IN 1 D), ORAL
     Route: 048
     Dates: start: 20060101
  2. ZIAC [Concomitant]
  3. TELMISARTAN (TELMISARTAN) [Concomitant]
  4. OMACOR (OMEGA-3 MARINE TRIGLYCERIDES) [Concomitant]
  5. METFORMIN HCL [Concomitant]
  6. MULTIVITAMIN [Concomitant]

REACTIONS (6)
  - DIZZINESS [None]
  - FATIGUE [None]
  - HEADACHE [None]
  - INCREASED APPETITE [None]
  - SOMNOLENCE [None]
  - WEIGHT INCREASED [None]
